FAERS Safety Report 5396500-0 (Version None)
Quarter: 2007Q3

REPORT INFORMATION
  Report Type: 
  Country: None (occurrence: None)
  Receive Date: 20070725
  Receipt Date: 20070719
  Transmission Date: 20080115
  Serious: Yes (Other)
  Sender: FDA-Public Use
  Company Number: PHBS2007BE11414

PATIENT
  Sex: Male

DRUGS (6)
  1. ZOMETA [Suspect]
     Indication: METASTASES TO BONE
  2. AREDIA [Suspect]
     Indication: METASTASES TO BONE
     Dates: start: 20001113
  3. CISPLATIN [Concomitant]
  4. GEMCITABINE HCL [Concomitant]
  5. TAXOTERE [Concomitant]
  6. IRESSA [Concomitant]

REACTIONS (6)
  - FISTULA [None]
  - OSTEITIS [None]
  - OSTEONECROSIS [None]
  - PAIN IN JAW [None]
  - SURGERY [None]
  - TOOTH EXTRACTION [None]
